FAERS Safety Report 5083807-X (Version None)
Quarter: 2006Q3

REPORT INFORMATION
  Report Type: 
  Country: None (occurrence: None)
  Receive Date: 20060818
  Receipt Date: 20060331
  Transmission Date: 20061208
  Serious: Yes (Disabling)
  Sender: FDA-Public Use
  Company Number: GB-ABBOTT-06P-167-0330115-00

PATIENT

DRUGS (5)
  1. KALETRA [Suspect]
     Indication: HIV INFECTION
     Route: 048
     Dates: start: 20040930, end: 20041029
  2. TENOFOVIR DISOPROXIL [Concomitant]
     Indication: HIV INFECTION
     Route: 048
     Dates: start: 20040920
  3. BTC [Concomitant]
     Indication: HIV INFECTION
     Route: 048
     Dates: start: 20040930
  4. DAPSONE [Concomitant]
     Indication: ANTIBIOTIC PROPHYLAXIS
     Route: 048
  5. PYRIMETHAMINE TAB [Concomitant]
     Indication: TOXOPLASMOSIS
     Route: 048

REACTIONS (4)
  - DECREASED ACTIVITY [None]
  - DIARRHOEA [None]
  - DRUG INTOLERANCE [None]
  - INSOMNIA [None]
